FAERS Safety Report 7327936-6 (Version None)
Quarter: 2011Q1

REPORT INFORMATION
  Report Type: 
  Country: None (occurrence: None)
  Receive Date: 20110224
  Receipt Date: 20110224
  Transmission Date: 20110831
  Serious: No
  Sender: FDA-Public Use
  Company Number: None

PATIENT
  Sex: Female
  Weight: 55.3388 kg

DRUGS (1)
  1. VENLAFAXINE HCL EXTENDED-RELEASE [Suspect]

REACTIONS (6)
  - VISION BLURRED [None]
  - NAUSEA [None]
  - HEADACHE [None]
  - PRODUCT SUBSTITUTION ISSUE [None]
  - FATIGUE [None]
  - DEPRESSION [None]
